FAERS Safety Report 14432330 (Version 4)
Quarter: 2018Q4

REPORT INFORMATION
  Report Type: Report from Study
  Country: FR (occurrence: FR)
  Receive Date: 20180124
  Receipt Date: 20181029
  Transmission Date: 20190204
  Serious: Yes (Death, Hospitalization)
  Sender: FDA-Public Use
  Company Number: FR-ROCHE-1870594

PATIENT
  Age: 69 Year
  Sex: Male
  Weight: 74 kg

DRUGS (44)
  1. OBINUTUZUMAB. [Suspect]
     Active Substance: OBINUTUZUMAB
     Indication: CHRONIC LYMPHOCYTIC LEUKAEMIA
     Dosage: C1D1 START TIME: 12:00 AND END TIME: 16:15?PLANNED INITIAL INFUSION RATE: 25 AND ACTUAL MAXIMAL INFU
     Route: 042
     Dates: start: 20140114, end: 20140114
  2. OBINUTUZUMAB. [Suspect]
     Active Substance: OBINUTUZUMAB
     Dosage: C1D15 START TIME: 14:30 AND END TIME: 17:30?PLANNED INITIAL INFUSION RATE: 400 AND ACTUAL MAXIMAL IN
     Route: 042
     Dates: start: 20140129, end: 20140129
  3. CYTARABINE. [Concomitant]
     Active Substance: CYTARABINE
     Route: 065
     Dates: start: 20160830, end: 20160921
  4. OBINUTUZUMAB. [Suspect]
     Active Substance: OBINUTUZUMAB
     Dosage: C5D1 START TIME: 13:45 AND END TIME: 17:00?PLANNED INITIAL INFUSION RATE: 400 AND ACTUAL MAXIMAL INF
     Route: 042
     Dates: start: 20140520, end: 20140520
  5. OBINUTUZUMAB. [Suspect]
     Active Substance: OBINUTUZUMAB
     Dosage: C6D1 START TIME: 13:40 AND END TIME: 17:00, DATE OF LAST DOSE PRIOR TO SAE: 17/JUN/2014?PLANNED INIT
     Route: 042
     Dates: start: 20140617, end: 20140617
  6. BENDAMUSTINE [Suspect]
     Active Substance: BENDAMUSTINE
     Indication: CHRONIC LYMPHOCYTIC LEUKAEMIA
     Dosage: C1D1 START TIME: 17:20 AND END TIME: 18:20?PLANNED DOSE: 70 MG/M2
     Route: 042
     Dates: start: 20140114, end: 20140114
  7. BENDAMUSTINE [Suspect]
     Active Substance: BENDAMUSTINE
     Dosage: C3D2 START TIME: 18:00 AND END TIME: 19:00?PLANNED DOSE: 70 MG/M2
     Route: 042
     Dates: start: 20140325, end: 20140325
  8. BENDAMUSTINE [Suspect]
     Active Substance: BENDAMUSTINE
     Dosage: C6D1 START TIME: 17:10 AND END TIME: 18:10?PLANNED DOSE: 70 MG/M2
     Route: 042
     Dates: start: 20140617, end: 20140617
  9. RITUXIMAB. [Suspect]
     Active Substance: RITUXIMAB
     Route: 065
     Dates: start: 20160829, end: 20160919
  10. DEXAMETHASONE. [Suspect]
     Active Substance: DEXAMETHASONE
     Indication: CHRONIC LYMPHOCYTIC LEUKAEMIA
     Route: 065
     Dates: start: 20160829, end: 20160922
  11. BI PROFENID [Concomitant]
     Active Substance: KETOPROFEN
     Route: 048
     Dates: start: 201606, end: 20160615
  12. LEDERFOLINE [Concomitant]
     Active Substance: LEUCOVORIN CALCIUM
     Route: 048
     Dates: start: 20160114
  13. BENDAMUSTINE [Suspect]
     Active Substance: BENDAMUSTINE
     Dosage: C4D2 START TIME: 18:00 AND END TIME: 19:00?PLANNED DOSE: 70 MG/M2
     Route: 042
     Dates: start: 20140423, end: 20140423
  14. BENDAMUSTINE [Suspect]
     Active Substance: BENDAMUSTINE
     Dosage: C5D2 START TIME: 11:40 AND END TIME: 12:35?PLANNED DOSE: 70 MG/M2
     Route: 042
     Dates: start: 20140521, end: 20140521
  15. RITUXIMAB. [Suspect]
     Active Substance: RITUXIMAB
     Indication: CHRONIC LYMPHOCYTIC LEUKAEMIA
     Route: 065
     Dates: start: 20160617, end: 20160701
  16. LERCANIDIPINE [Concomitant]
     Active Substance: LERCANIDIPINE
     Indication: HYPERTENSION
     Route: 048
     Dates: start: 2002
  17. PARACETAMOL [Concomitant]
     Active Substance: ACETAMINOPHEN
     Route: 048
     Dates: start: 201606, end: 20160615
  18. OBINUTUZUMAB. [Suspect]
     Active Substance: OBINUTUZUMAB
     Dosage: C1D8 START TIME: 13:35 AND END TIME: 17:05?PLANNED INITIAL INFUSION RATE: 400 AND ACTUAL MAXIMAL INF
     Route: 042
     Dates: start: 20140121, end: 20140121
  19. BENDAMUSTINE [Suspect]
     Active Substance: BENDAMUSTINE
     Dosage: C4D1 START TIME: 17:30 AND END TIME: 18:30?PLANNED DOSE: 70 MG/M2
     Route: 042
     Dates: start: 20140422, end: 20140422
  20. BENDAMUSTINE [Suspect]
     Active Substance: BENDAMUSTINE
     Dosage: C5D1 START TIME: 17:10 AND END TIME: 18:15?PLANNED DOSE: 70 MG/M2
     Route: 042
     Dates: start: 20140520, end: 20140520
  21. RITUXIMAB. [Suspect]
     Active Substance: RITUXIMAB
     Route: 065
     Dates: start: 20160715, end: 20160805
  22. CARBOPLATIN. [Suspect]
     Active Substance: CARBOPLATIN
     Indication: CHRONIC LYMPHOCYTIC LEUKAEMIA
     Route: 065
     Dates: start: 20160829, end: 20160919
  23. CYTARABINE. [Concomitant]
     Active Substance: CYTARABINE
     Route: 065
     Dates: start: 20160829, end: 20160919
  24. OBINUTUZUMAB. [Suspect]
     Active Substance: OBINUTUZUMAB
     Dosage: C3D1 START TIME: 12:20 AND END TIME: 16:00?PLANNED INITIAL INFUSION RATE: 400 AND ACTUAL MAXIMAL INF
     Route: 042
     Dates: start: 20140324, end: 20140324
  25. BENDAMUSTINE [Suspect]
     Active Substance: BENDAMUSTINE
     Dosage: C2D1 START TIME: 17:30 AND END TIME: 18:30?PLANNED DOSE: 70 MG/M2
     Route: 042
     Dates: start: 20140211, end: 20140211
  26. BENDAMUSTINE [Suspect]
     Active Substance: BENDAMUSTINE
     Dosage: C2D2 START TIME: 12:00 AND END TIME: 13:00?PLANNED DOSE: 70 MG/M2
     Route: 042
     Dates: start: 20140212, end: 20140212
  27. RITUXIMAB. [Suspect]
     Active Substance: RITUXIMAB
     Route: 065
     Dates: start: 20161012, end: 20161019
  28. ARA-C [Suspect]
     Active Substance: CYTARABINE
     Indication: CHRONIC LYMPHOCYTIC LEUKAEMIA
     Route: 065
     Dates: start: 20160829
  29. LERCANIDIPINE [Concomitant]
     Active Substance: LERCANIDIPINE
     Route: 048
     Dates: start: 2005
  30. ZELITREX [Concomitant]
     Active Substance: VALACYCLOVIR HYDROCHLORIDE
     Indication: PROPHYLAXIS
     Route: 048
     Dates: start: 20140114
  31. OBINUTUZUMAB. [Suspect]
     Active Substance: OBINUTUZUMAB
     Dosage: C2D1 START TIME: 14:30 AND END TIME: 17:30?PLANNED INITIAL INFUSION RATE: 400 AND ACTUAL MAXIMAL INF
     Route: 042
     Dates: start: 20140211, end: 20140211
  32. OBINUTUZUMAB. [Suspect]
     Active Substance: OBINUTUZUMAB
     Dosage: C4D1 START TIME: 14:00 AND END TIME: 17:30?PLANNED INITIAL INFUSION RATE: 400 AND ACTUAL MAXIMAL INF
     Route: 042
     Dates: start: 20140422, end: 20140422
  33. BENDAMUSTINE [Suspect]
     Active Substance: BENDAMUSTINE
     Dosage: C6D2 START TIME: 11:45 AND END TIME: 12:45, DATE OF LAST DOSE PRIOR TO SAE: 18/JUN/2014?PLANNED DOSE
     Route: 042
     Dates: start: 20140618, end: 20140618
  34. AUGMENTIN [Concomitant]
     Active Substance: AMOXICILLIN\CLAVULANATE POTASSIUM
     Route: 048
     Dates: start: 201606, end: 20160615
  35. ZOPHREN [Concomitant]
     Active Substance: ONDANSETRON
     Indication: HYPERTENSION
     Route: 042
     Dates: start: 20140115
  36. LEDERFOLINE [Concomitant]
     Active Substance: LEUCOVORIN CALCIUM
     Route: 048
     Dates: start: 20140114
  37. BENDAMUSTINE [Suspect]
     Active Substance: BENDAMUSTINE
     Dosage: C1D2 START TIME: 16:55 AND END TIME: 17:55?PLANNED DOSE: 70 MG/M2
     Route: 042
     Dates: start: 20140115, end: 20140115
  38. BENDAMUSTINE [Suspect]
     Active Substance: BENDAMUSTINE
     Dosage: C3D1 START TIME: 16:00 AND END TIME: 17:00?PLANNED DOSE: 70 MG/M2
     Route: 042
     Dates: start: 20140324, end: 20140324
  39. DOXORUBICIN [Suspect]
     Active Substance: DOXORUBICIN
     Indication: CHRONIC LYMPHOCYTIC LEUKAEMIA
     Route: 065
     Dates: start: 20160715, end: 20160805
  40. BACTRIM [Concomitant]
     Active Substance: SULFAMETHOXAZOLE\TRIMETHOPRIM
     Route: 048
     Dates: start: 20140114
  41. OBINUTUZUMAB. [Suspect]
     Active Substance: OBINUTUZUMAB
     Dosage: C1D2 START TIME: 11:30 AND END TIME: 16:25?PLANNED INITIAL INFUSION RATE: 400 AND ACTUAL MAXIMAL INF
     Route: 042
     Dates: start: 20140115, end: 20140115
  42. AUGMENTIN [Concomitant]
     Active Substance: AMOXICILLIN\CLAVULANATE POTASSIUM
     Indication: CHRONIC SINUSITIS
     Route: 048
     Dates: start: 20131127, end: 20140121
  43. FASTURTEC [Concomitant]
     Active Substance: RASBURICASE
     Indication: PROPHYLAXIS
     Route: 042
     Dates: start: 20140114, end: 20140114
  44. INEXIUM [Concomitant]
     Active Substance: ESOMEPRAZOLE
     Route: 048
     Dates: start: 201606

REACTIONS (3)
  - Pancytopenia [Not Recovered/Not Resolved]
  - Haematuria [Recovered/Resolved]
  - Richter^s syndrome [Fatal]

NARRATIVE: CASE EVENT DATE: 20160630
